FAERS Safety Report 13675154 (Version 3)
Quarter: 2017Q3

REPORT INFORMATION
  Report Type: Spontaneous
  Country: US (occurrence: US)
  Receive Date: 20170621
  Receipt Date: 20170719
  Transmission Date: 20171127
  Serious: Yes (Other)
  Sender: FDA-Public Use
  Company Number: US-PFIZER INC-2017269291

PATIENT
  Age: 57 Year
  Sex: Male

DRUGS (1)
  1. HYDROCORTISONE. [Suspect]
     Active Substance: HYDROCORTISONE
     Indication: ADRENAL GLAND OPERATION
     Dosage: 10 MG, 3X/DAY

REACTIONS (2)
  - Apparent death [Recovered/Resolved]
  - Malaise [Unknown]
